FAERS Safety Report 12654179 (Version 1)
Quarter: 2016Q3

REPORT INFORMATION
  Report Type: Spontaneous
  Country: US (occurrence: None)
  Receive Date: 20160815
  Receipt Date: 20160815
  Transmission Date: 20161109
  Serious: Yes (Hospitalization)
  Sender: FDA-Public Use
  Company Number: None

PATIENT
  Age: 48 Year
  Sex: Female
  Weight: 79 kg

DRUGS (1)
  1. MEMANTINE HYDROCHLORIDE. [Suspect]
     Active Substance: MEMANTINE HYDROCHLORIDE
     Dates: end: 20160812

REACTIONS (6)
  - Wound secretion [None]
  - Metastases to lung [None]
  - Metastases to chest wall [None]
  - Condition aggravated [None]
  - Malignant neoplasm progression [None]
  - Breast cancer metastatic [None]

NARRATIVE: CASE EVENT DATE: 20160713
